FAERS Safety Report 18198525 (Version 1)
Quarter: 2020Q3

REPORT INFORMATION
  Report Type: Spontaneous
  Country: DE (occurrence: DE)
  Receive Date: 20200826
  Receipt Date: 20200826
  Transmission Date: 20201103
  Serious: Yes (Other)
  Sender: FDA-Public Use
  Company Number: DE-NOVOPROD-746926

PATIENT
  Age: 39 Year
  Sex: Female
  Weight: 62 kg

DRUGS (11)
  1. L?THYROX [Concomitant]
     Active Substance: LEVOTHYROXINE SODIUM
     Indication: THYROID HORMONE REPLACEMENT THERAPY
     Dosage: 125 [???G/D (BIS 100) ]
     Route: 048
     Dates: start: 20190703, end: 20200324
  2. PREDNISOLON [PREDNISOLONE] [Suspect]
     Active Substance: PREDNISOLONE
     Indication: POLYARTHRITIS
  3. LODOTRA [Suspect]
     Active Substance: PREDNISONE
     Indication: SARCOIDOSIS
     Dosage: 7 [MG/D ]/ AND CHRONIC POLYARTHRITIS
     Route: 048
     Dates: start: 20191009, end: 20200324
  4. CYTOTEC [Concomitant]
     Active Substance: MISOPROSTOL
     Indication: LABOUR INDUCTION
     Dosage: 400 [???/D (2X200) ]
     Route: 048
     Dates: start: 20200324, end: 20200324
  5. PREDNISOLON [PREDNISOLONE] [Suspect]
     Active Substance: PREDNISOLONE
     Indication: SARCOIDOSIS
     Dosage: 7 [MG/D ]/ AND CHRONIC POLYARTHRITIS
     Route: 048
     Dates: start: 20190703, end: 20191008
  6. INFLUSPLIT TETRA [Concomitant]
     Active Substance: INFLUENZA VIRUS VACCINE
     Indication: IMMUNISATION
     Dosage: UNK
     Route: 030
     Dates: start: 20191125, end: 20191125
  7. PROTAPHANE [Suspect]
     Active Substance: INSULIN HUMAN
     Indication: TYPE 3 DIABETES MELLITUS
     Dosage: 10 [IE/D (MAX.) ]
     Route: 058
  8. ASPIRIN. [Concomitant]
     Active Substance: ASPIRIN
     Indication: PROPHYLAXIS
     Dosage: 150 [MG/D ]
     Route: 048
  9. FOLIO FORTE [Concomitant]
     Active Substance: FOLIC ACID\VITAMINS
     Indication: PROPHYLAXIS OF NEURAL TUBE DEFECT
     Dosage: 0. ? 37.6. GESTATIONAL WEEK 0.8 [MG/D
     Route: 048
     Dates: start: 20190703, end: 20200324
  10. HUMALOG [Suspect]
     Active Substance: INSULIN LISPRO
     Indication: TYPE 3 DIABETES MELLITUS
     Dosage: 4 [IE/D (BIS 2) ]
     Route: 058
  11. LODOTRA [Suspect]
     Active Substance: PREDNISONE
     Indication: POLYARTHRITIS

REACTIONS (2)
  - Type 3 diabetes mellitus [Unknown]
  - Maternal exposure during pregnancy [Recovered/Resolved]
